FAERS Safety Report 8220929-6 (Version None)
Quarter: 2012Q1

REPORT INFORMATION
  Report Type: 
  Country: None (occurrence: None)
  Receive Date: 20120320
  Receipt Date: 20120309
  Transmission Date: 20120608
  Serious: Yes (Hospitalization)
  Sender: FDA-Public Use
  Company Number: ES-SANOFI-AVENTIS-2011SA062357

PATIENT
  Age: 65 Year
  Sex: Male

DRUGS (11)
  1. CABAZITAXEL [Suspect]
     Indication: PROSTATE CANCER METASTATIC
     Route: 042
     Dates: start: 20110803, end: 20110803
  2. CABAZITAXEL [Suspect]
     Route: 042
     Dates: start: 20110914, end: 20110914
  3. PREDNISONE [Suspect]
     Indication: PROSTATE CANCER METASTATIC
     Route: 048
  4. LANIRAPID [Concomitant]
     Route: 065
  5. TENORMIN [Concomitant]
     Route: 065
  6. ALL OTHER THERAPEUTIC PRODUCTS [Concomitant]
     Route: 065
  7. DISGREN [Concomitant]
     Route: 065
  8. MORPHINE SULFATE [Concomitant]
     Route: 065
  9. ADALAT [Concomitant]
     Route: 065
  10. FUROSEMIDE [Concomitant]
     Route: 065
  11. RAMIPRIL [Concomitant]
     Route: 065

REACTIONS (2)
  - NEOPLASM PROGRESSION [None]
  - PULMONARY EMBOLISM [None]
